FAERS Safety Report 4511254-5 (Version None)
Quarter: 2004Q4

REPORT INFORMATION
  Report Type: 
  Country: None (occurrence: None)
  Receive Date: 20041122
  Receipt Date: 20041122
  Transmission Date: 20050328
  Serious: Yes (Other)
  Sender: FDA-Public Use
  Company Number: None

PATIENT
  Age: 52 Year
  Sex: Female
  Weight: 104.3273 kg

DRUGS (1)
  1. BUPROPION  100 [Suspect]
     Indication: DEPRESSION
     Dosage: 1 DAILY
     Dates: start: 20041117, end: 20041118

REACTIONS (2)
  - RASH [None]
  - URTICARIA [None]
